FAERS Safety Report 22519385 (Version 2)
Quarter: 2023Q2

REPORT INFORMATION
  Report Type: Report from Study
  Country: NL (occurrence: NL)
  Receive Date: 20230605
  Receipt Date: 20230612
  Transmission Date: 20230721
  Serious: Yes (Hospitalization)
  Sender: FDA-Public Use
  Company Number: NL-JNJFOC-20221213745

PATIENT
  Age: 80 Year
  Sex: Male
  Weight: 85 kg

DRUGS (11)
  1. BORTEZOMIB [Suspect]
     Active Substance: BORTEZOMIB
     Indication: Plasma cell myeloma
     Dosage: 1.08 MILLILITER
     Route: 058
     Dates: start: 20221031, end: 20221201
  2. DEXAMETHASONE [Suspect]
     Active Substance: DEXAMETHASONE
     Indication: Plasma cell myeloma
     Dosage: 20 MILLIGRAM
     Route: 048
     Dates: start: 20221031, end: 20221121
  3. LENALIDOMIDE [Suspect]
     Active Substance: LENALIDOMIDE
     Indication: Plasma cell myeloma
     Dosage: 25 MILLIGRAM
     Route: 048
     Dates: start: 20221031, end: 20221204
  4. OXYBUTYNIN CHLORIDE [Concomitant]
     Active Substance: OXYBUTYNIN CHLORIDE
     Indication: Spinal cord compression
     Dosage: 5 MILLIGRAM, TID
     Route: 048
     Dates: start: 20220827
  5. PANTOPRAZOLE SODIUM [Concomitant]
     Active Substance: PANTOPRAZOLE SODIUM
     Indication: Prophylaxis
     Dosage: 20 MILLIGRAM, QD
     Route: 048
     Dates: start: 20220921
  6. CALCITRIOL\CALCIUM CARBONATE [Concomitant]
     Active Substance: CALCITRIOL\CALCIUM CARBONATE
     Indication: Prophylaxis
     Dosage: UNK, QD
     Route: 048
     Dates: start: 20220930
  7. ASPIRIN [Concomitant]
     Active Substance: ASPIRIN
     Indication: Anticoagulant therapy
     Dosage: 80 MILLIGRAM, QD
     Route: 048
     Dates: start: 20221031
  8. FLUCONAZOLE [Concomitant]
     Active Substance: FLUCONAZOLE
     Indication: Prophylaxis
     Dosage: 200 MILLIGRAM, QD
     Route: 048
     Dates: start: 20221121
  9. VALACYCLOVIR HYDROCHLORIDE [Concomitant]
     Active Substance: VALACYCLOVIR HYDROCHLORIDE
     Indication: Antiviral prophylaxis
     Dosage: 500 MILLIGRAM, BID
     Route: 048
     Dates: start: 20221121
  10. NADROPARIN [Concomitant]
     Active Substance: NADROPARIN
     Indication: Thrombosis prophylaxis
     Dosage: 2850 INTERNATIONAL UNIT, QD
     Route: 058
     Dates: start: 20221206
  11. POTASSIUM CHLORIDE [Concomitant]
     Active Substance: POTASSIUM CHLORIDE
     Indication: Hypokalaemia
     Dosage: 600 MILLIGRAM, QD
     Route: 048
     Dates: start: 20221212, end: 20221218

REACTIONS (2)
  - Peripheral sensorimotor neuropathy [Not Recovered/Not Resolved]
  - Malaise [Not Recovered/Not Resolved]

NARRATIVE: CASE EVENT DATE: 20221205
